FAERS Safety Report 7092031-0 (Version None)
Quarter: 2010Q4

REPORT INFORMATION
  Report Type: 
  Country: None (occurrence: None)
  Receive Date: 20101109
  Receipt Date: 20081112
  Transmission Date: 20110411
  Serious: No
  Sender: FDA-Public Use
  Company Number: US-KINGPHARMUSA00001-K200801300

PATIENT
  Sex: Female

DRUGS (1)
  1. SKELAXIN [Suspect]
     Indication: MUSCLE SPASMS
     Dosage: 400 MG, SINGLE
     Route: 048
     Dates: start: 20081111, end: 20081111

REACTIONS (13)
  - DIZZINESS [None]
  - DRY MOUTH [None]
  - DRY THROAT [None]
  - FATIGUE [None]
  - FEELING ABNORMAL [None]
  - HYPOTONIA [None]
  - INSOMNIA [None]
  - MUSCULOSKELETAL DISCOMFORT [None]
  - MYALGIA [None]
  - NAUSEA [None]
  - PALPITATIONS [None]
  - SOMNOLENCE [None]
  - VERTIGO [None]
